FAERS Safety Report 16760753 (Version 2)
Quarter: 2019Q3

REPORT INFORMATION
  Report Type: Spontaneous
  Country: JP (occurrence: JP)
  Receive Date: 20190830
  Receipt Date: 20190922
  Transmission Date: 20191005
  Serious: Yes (Death, Hospitalization)
  Sender: FDA-Public Use
  Company Number: JP-MTPC-MTPC2019-0068760

PATIENT

DRUGS (12)
  1. RADICUT BAG FOR I.V. INFUSION 30MG [Suspect]
     Active Substance: EDARAVONE
     Dosage: UNK
     Route: 041
  2. SYMMETREL [Concomitant]
     Active Substance: AMANTADINE HYDROCHLORIDE
     Route: 048
  3. DOPS [Concomitant]
     Active Substance: DROXIDOPA
     Route: 048
  4. LENDORMIN D [Concomitant]
     Active Substance: BROTIZOLAM
     Route: 065
  5. NAUZELIN [Concomitant]
     Active Substance: DOMPERIDONE
     Route: 048
  6. RADICUT BAG FOR I.V. INFUSION 30MG [Suspect]
     Active Substance: EDARAVONE
     Dosage: 60 MILLIGRAM, QD
     Route: 041
     Dates: start: 20190815, end: 20190820
  7. RADICUT BAG FOR I.V. INFUSION 30MG [Suspect]
     Active Substance: EDARAVONE
     Indication: AMYOTROPHIC LATERAL SCLEROSIS
     Dosage: UNK
     Route: 041
  8. PURSENNID [Concomitant]
     Route: 048
  9. RILUTEK [Concomitant]
     Active Substance: RILUZOLE
     Route: 048
  10. MADOPAR [Concomitant]
     Active Substance: BENSERAZIDE HYDROCHLORIDE\LEVODOPA
     Route: 048
  11. BELSOMRA [Concomitant]
     Active Substance: SUVOREXANT
     Route: 048
  12. NEXIUM [Concomitant]
     Active Substance: ESOMEPRAZOLE MAGNESIUM
     Route: 048

REACTIONS (1)
  - Pneumonia aspiration [Fatal]

NARRATIVE: CASE EVENT DATE: 20190818
